FAERS Safety Report 23146793 (Version 1)
Quarter: 2023Q4

REPORT INFORMATION
  Report Type: Spontaneous
  Country: HU (occurrence: HU)
  Receive Date: 20231105
  Receipt Date: 20231105
  Transmission Date: 20240110
  Serious: Yes (Other)
  Sender: FDA-Public Use
  Company Number: HU-CELLTRION INC.-2023HU021152

PATIENT

DRUGS (2)
  1. RITUXIMAB [Suspect]
     Active Substance: RITUXIMAB
     Indication: Anti-myelin-associated glycoprotein associated polyneuropathy
     Dosage: FIRST REGIMEN, DID NOT PRODUCE ANY MEANINGFUL RESULTS
  2. RITUXIMAB [Suspect]
     Active Substance: RITUXIMAB
     Dosage: SECOND REGIMEN, AFTER 1 CYCLE OF PLASMAPHERESIS

REACTIONS (2)
  - Ischaemic stroke [Unknown]
  - Drug ineffective for unapproved indication [Unknown]
